FAERS Safety Report 21321226 (Version 1)
Quarter: 2022Q3

REPORT INFORMATION
  Report Type: Spontaneous
  Country: US (occurrence: US)
  Receive Date: 20220912
  Receipt Date: 20220912
  Transmission Date: 20221026
  Serious: No
  Sender: FDA-Public Use
  Company Number: US-TEVA-2022-US-2069208

PATIENT
  Age: 45 Year
  Sex: Female

DRUGS (2)
  1. CLONIDINE [Suspect]
     Active Substance: CLONIDINE
     Indication: Anxiety
     Route: 062
  2. CLONIDINE [Suspect]
     Active Substance: CLONIDINE
     Indication: Hypertension

REACTIONS (5)
  - Application site rash [Unknown]
  - Application site pain [Unknown]
  - Poor quality product administered [Unknown]
  - Product adhesion issue [Unknown]
  - Knee arthroplasty [Unknown]

NARRATIVE: CASE EVENT DATE: 20220101
